FAERS Safety Report 18667749 (Version 2)
Quarter: 2021Q3

REPORT INFORMATION
  Report Type: Other
  Country: DE (occurrence: DE)
  Receive Date: 20201228
  Receipt Date: 20210824
  Transmission Date: 20211014
  Serious: Yes (Hospitalization)
  Sender: FDA-Public Use
  Company Number: DE-ROCHE-2252761

PATIENT
  Age: 69 Year
  Sex: Female

DRUGS (22)
  1. METHOTREXATE. [Suspect]
     Active Substance: METHOTREXATE
     Indication: RHEUMATOID ARTHRITIS
     Route: 065
  2. CLOPIDOGREL [Concomitant]
     Active Substance: CLOPIDOGREL BISULFATE
  3. FOLIC ACID. [Concomitant]
     Active Substance: FOLIC ACID
  4. RITUXIMAB. [Suspect]
     Active Substance: RITUXIMAB
     Dosage: DATE RECEIVED: 06/SEP/2020
     Route: 041
  5. BISOPROLOL [Concomitant]
     Active Substance: BISOPROLOL
  6. ISOSORBIDE. [Concomitant]
     Active Substance: ISOSORBIDE
  7. TORASEMID [Concomitant]
     Active Substance: TORSEMIDE
  8. PREDNISOLON [Concomitant]
     Active Substance: PREDNISOLONE
  9. COLECALCIFEROL [Concomitant]
     Active Substance: CHOLECALCIFEROL
  10. DENOSUMAB [Concomitant]
     Active Substance: DENOSUMAB
     Indication: OSTEOPOROSIS
  11. ATORVASTATIN [Concomitant]
     Active Substance: ATORVASTATIN
  12. RAMIPRIL. [Concomitant]
     Active Substance: RAMIPRIL
  13. SIMVASTATIN. [Concomitant]
     Active Substance: SIMVASTATIN
  14. RITUXIMAB. [Suspect]
     Active Substance: RITUXIMAB
     Indication: RHEUMATOID ARTHRITIS
     Dosage: RITUXIMAB DOSE GIVEN ON /JUL/2018, /JAN/2019, /JUL/2019, /FEB/2020, DEC/2020
     Route: 041
     Dates: start: 201712
  15. MAGNESIUM [Concomitant]
     Active Substance: MAGNESIUM
  16. PANTOPRAZOL [Concomitant]
     Active Substance: PANTOPRAZOLE SODIUM
  17. PREGABALIN. [Concomitant]
     Active Substance: PREGABALIN
  18. BUPRENORPHIN [Concomitant]
     Active Substance: BUPRENORPHINE
  19. LEVETIRACETAM. [Concomitant]
     Active Substance: LEVETIRACETAM
  20. THIAMAZOL [Concomitant]
     Active Substance: METHIMAZOLE
  21. AMITRIPTYLIN [Concomitant]
     Active Substance: AMITRIPTYLINE
  22. BENEPALI [Suspect]
     Active Substance: ETANERCEPT
     Indication: RHEUMATOID ARTHRITIS
     Route: 065
     Dates: start: 201701, end: 201710

REACTIONS (7)
  - Escherichia urinary tract infection [Recovered/Resolved]
  - Fatigue [Unknown]
  - Gastroenteritis [Recovered/Resolved]
  - Acute kidney injury [Recovered/Resolved]
  - Cystitis [Recovered/Resolved]
  - Dehydration [Unknown]
  - Dysuria [Recovered/Resolved]

NARRATIVE: CASE EVENT DATE: 201812
